FAERS Safety Report 10590364 (Version 1)
Quarter: 2014Q4

REPORT INFORMATION
  Report Type: Spontaneous
  Country: CA (occurrence: CA)
  Receive Date: 20141118
  Receipt Date: 20141118
  Transmission Date: 20150529
  Serious: Yes (Other)
  Sender: FDA-Public Use
  Company Number: CA-MYLANLABS-2014M1010548

PATIENT

DRUGS (3)
  1. DACTINOMYCIN [Concomitant]
     Active Substance: DACTINOMYCIN
  2. VINCRISTINE [Concomitant]
     Active Substance: VINCRISTINE
     Dosage: UNK
  3. DOXORUBICIN [Suspect]
     Active Substance: DOXORUBICIN
     Indication: NEPHROBLASTOMA
     Dosage: UNK

REACTIONS (1)
  - Pulmonary hypertension [Not Recovered/Not Resolved]
